FAERS Safety Report 5226893-6 (Version None)
Quarter: 2007Q1

REPORT INFORMATION
  Report Type: 
  Country: None (occurrence: None)
  Receive Date: 20070130
  Receipt Date: 20070127
  Transmission Date: 20070707
  Serious: Yes (Other)
  Sender: FDA-Public Use
  Company Number: 234309

PATIENT
  Age: 86 Year
  Sex: Female

DRUGS (3)
  1. LUCENTIS [Suspect]
     Indication: CHOROIDAL NEOVASCULARISATION
     Dosage: INTRAOCULAR
     Route: 031
     Dates: start: 20061024, end: 20061219
  2. WARFARIN SODIUM [Concomitant]
  3. SERETIDE (FLUTICASONE PROPIONATE, SALMETEROL XINAFOATE) [Concomitant]

REACTIONS (2)
  - LIMB DISCOMFORT [None]
  - MUSCLE SPASMS [None]
